FAERS Safety Report 7383457-6 (Version None)
Quarter: 2011Q1

REPORT INFORMATION
  Report Type: 
  Country: None (occurrence: None)
  Receive Date: 20110330
  Receipt Date: 20110322
  Transmission Date: 20110831
  Serious: Yes (Hospitalization)
  Sender: FDA-Public Use
  Company Number: US-AMGEN-USACT2011014843

PATIENT
  Age: 66 Year
  Sex: Female
  Weight: 133 kg

DRUGS (12)
  1. EPOETIN ALFA - PROCRIT [Suspect]
     Indication: ANAEMIA
     Dosage: UNK UNK, ONE TIME DOSE
     Route: 058
     Dates: start: 20110302, end: 20110302
  2. TELAPREVIR [Concomitant]
     Dosage: UNK UNK, Q8H
     Route: 048
     Dates: start: 20110124, end: 20110222
  3. PROZAC [Concomitant]
     Indication: DEPRESSION
     Dosage: 10 MG, QD
     Route: 048
  4. FISH OIL [Concomitant]
     Dosage: 1200 MG, PRN
     Route: 048
  5. ALEVE [Concomitant]
     Indication: SPINAL COLUMN STENOSIS
  6. ALEVE [Concomitant]
     Indication: OSTEOARTHRITIS
     Dosage: 250 MG, PRN
     Route: 048
  7. HYDROXYZINE HYDROCHLORIDE [Concomitant]
     Dosage: 25 MG, PRN
     Route: 048
     Dates: start: 20110207
  8. BENADRYL [Concomitant]
     Dosage: 25 MG, PRN
     Route: 048
     Dates: start: 20110131
  9. DULCOLAX [Concomitant]
     Indication: CONSTIPATION
     Dosage: 100 MG, PRN
     Route: 048
  10. RIBAVIRIN [Concomitant]
     Dosage: UNK UNK, BID
     Dates: start: 20110124
  11. XANAX [Concomitant]
     Indication: ANXIETY
     Dosage: 1 MG, PRN
     Route: 048
  12. PEGASYS [Suspect]
     Dosage: 180 A?G, QWK
     Dates: start: 20110124, end: 20110228

REACTIONS (1)
  - CONVULSION [None]
